FAERS Safety Report 5346186-6 (Version None)
Quarter: 2007Q2

REPORT INFORMATION
  Report Type: 
  Country: None (occurrence: None)
  Receive Date: 20070601
  Receipt Date: 20070516
  Transmission Date: 20071010
  Serious: No
  Sender: FDA-Public Use
  Company Number: 032-104

PATIENT
  Age: 55 Year
  Sex: Female

DRUGS (2)
  1. TEVETEN [Suspect]
     Indication: ESSENTIAL HYPERTENSION
     Dosage: 600 MG QD PO
     Route: 048
     Dates: start: 20060504, end: 20070504
  2. ALLOPURINOL [Concomitant]

REACTIONS (1)
  - INTRAOCULAR PRESSURE INCREASED [None]
